FAERS Safety Report 6478864-X (Version None)
Quarter: 2009Q4

REPORT INFORMATION
  Report Type: 
  Country: None (occurrence: None)
  Receive Date: 20091207
  Receipt Date: 20091130
  Transmission Date: 20100525
  Serious: Yes (Other)
  Sender: FDA-Public Use
  Company Number: BE-GENENTECH-291863

PATIENT
  Age: 42 Year
  Sex: Female

DRUGS (1)
  1. HERCEPTIN [Suspect]
     Indication: BREAST CANCER
     Dosage: UNK
     Route: 042
     Dates: start: 20081117

REACTIONS (5)
  - APHASIA [None]
  - ATAXIA [None]
  - HEARING IMPAIRED [None]
  - MEMORY IMPAIRMENT [None]
  - MENTAL DISORDER [None]
